FAERS Safety Report 8780704 (Version 1)
Quarter: 2012Q4

REPORT INFORMATION
  Report Type: 
  Country: CA (occurrence: CA)
  Receive Date: 20120913
  Receipt Date: 20120913
  Transmission Date: 20130627
  Serious: Yes (Life-Threatening, Disabling, Other)
  Sender: FDA-Public Use
  Company Number: CA-ROCHE-1120096

PATIENT
  Age: 23 Year
  Sex: Male
  Weight: 34 kg

DRUGS (17)
  1. SOMATROPIN [Suspect]
     Indication: PRODUCT USED FOR UNKNOWN INDICATION
     Route: 065
  2. EPREX [Suspect]
     Indication: PRODUCT USED FOR UNKNOWN INDICATION
     Route: 042
  3. EPREX [Suspect]
     Route: 065
  4. EPREX [Suspect]
     Route: 065
  5. EPREX [Suspect]
     Route: 065
  6. EPREX [Suspect]
     Route: 065
  7. EPREX [Suspect]
     Route: 065
  8. EPREX [Suspect]
     Route: 065
  9. EPREX [Suspect]
     Route: 042
  10. EPREX [Suspect]
     Route: 042
  11. EPREX [Suspect]
     Route: 058
  12. EPREX [Suspect]
     Route: 058
  13. CYCLOSPORINE [Concomitant]
     Route: 065
  14. FOLIC ACID [Concomitant]
     Route: 065
  15. MULTIVITAMIN [Concomitant]
     Route: 065
  16. PARIET [Concomitant]
     Route: 065
  17. RABEPRAZOLE [Concomitant]
     Route: 065

REACTIONS (7)
  - Blood calcium increased [Not Recovered/Not Resolved]
  - Blood parathyroid hormone decreased [Not Recovered/Not Resolved]
  - Drug resistance [Not Recovered/Not Resolved]
  - Pancytopenia [Not Recovered/Not Resolved]
  - Renal failure chronic [Not Recovered/Not Resolved]
  - Reticulocyte count decreased [Not Recovered/Not Resolved]
  - Sideroblastic anaemia [Not Recovered/Not Resolved]
